FAERS Safety Report 18311507 (Version 1)
Quarter: 2020Q3

REPORT INFORMATION
  Report Type: Spontaneous
  Country: US (occurrence: UM)
  Receive Date: 20200925
  Receipt Date: 20200925
  Transmission Date: 20201103
  Serious: No
  Sender: FDA-Public Use
  Company Number: US-ALVOGEN-2020-ALVOGEN-108139

PATIENT
  Age: 49 Year
  Sex: Female

DRUGS (1)
  1. GRALISE [Suspect]
     Active Substance: GABAPENTIN
     Indication: CERVICAL RADICULOPATHY
     Dosage: 600 MG, 3 TABLETS BY MOUTH DAILY WITH DINNER
     Route: 048

REACTIONS (3)
  - Product solubility abnormal [Unknown]
  - Product residue present [Unknown]
  - Treatment noncompliance [Unknown]
